FAERS Safety Report 21489673 (Version 1)
Quarter: 2022Q4

REPORT INFORMATION
  Report Type: Report from Study
  Country: NL (occurrence: NL)
  Receive Date: 20221021
  Receipt Date: 20221021
  Transmission Date: 20230113
  Serious: Yes (Death)
  Sender: FDA-Public Use
  Company Number: NL-ABBVIE-4169942

PATIENT
  Age: 79 Year
  Sex: Male

DRUGS (10)
  1. CARBIDOPA\LEVODOPA [Suspect]
     Active Substance: CARBIDOPA\LEVODOPA
     Indication: Parkinson^s disease
     Dosage: MD: 13.5 ML, CD: 4.6 ML/H, ED:4.0 ML?REMAINS AT 16 HOURS
     Route: 050
  2. CARBIDOPA\LEVODOPA [Suspect]
     Active Substance: CARBIDOPA\LEVODOPA
  3. ATORVASTATIN [Concomitant]
     Active Substance: ATORVASTATIN
     Indication: Blood cholesterol abnormal
     Dosage: 20 MG
  4. HYDROXOCOBALAMIN HYDROCHLORIDE [Concomitant]
     Active Substance: HYDROXOCOBALAMIN HYDROCHLORIDE
     Indication: Vitamin supplementation
     Dosage: FREQUENCY TEXT: 1 INJECTION EVERY TWO MONTHS
  5. CANDESARTAN [Concomitant]
     Active Substance: CANDESARTAN
     Indication: Product used for unknown indication
     Dosage: 80 MG
  6. PANTOPRAZOLE SODIUM [Concomitant]
     Active Substance: PANTOPRAZOLE SODIUM
     Indication: Prophylaxis
     Dosage: 40 MG
  7. CARBIDOPA\LEVODOPA [Concomitant]
     Active Substance: CARBIDOPA\LEVODOPA
     Indication: Parkinson^s disease
     Dosage: RETARD?125 MG?FREQUENCY TEXT: 2 TABLETS AT 10.30 PM
  8. CLOPIDOGREL [Concomitant]
     Active Substance: CLOPIDOGREL BISULFATE
     Indication: Anticoagulant therapy
     Dosage: 75 MG
  9. POLYETHYLENE GLYCOLS [Concomitant]
     Active Substance: POLYETHYLENE GLYCOLS
     Indication: Bowel movement irregularity
  10. METOPROLOL [Concomitant]
     Active Substance: METOPROLOL
     Indication: Blood pressure management
     Dosage: RETARD?50 MG

REACTIONS (1)
  - Death [Fatal]

NARRATIVE: CASE EVENT DATE: 20221011
